FAERS Safety Report 14367521 (Version 1)
Quarter: 2018Q1

REPORT INFORMATION
  Report Type: Spontaneous
  Country: US (occurrence: US)
  Receive Date: 20180105
  Receipt Date: 20180105
  Transmission Date: 20180509
  Serious: Yes (Life-Threatening)
  Sender: FDA-Public Use
  Company Number: None

PATIENT
  Age: 25 Year
  Sex: Male

DRUGS (1)
  1. OPMS KRATOM GOLD [Suspect]
     Active Substance: MITRAGYNINE\HERBALS
     Indication: ANXIETY
     Dosage: KRATOM ONCE DAILY X2 PO
     Route: 048
     Dates: start: 20171210

REACTIONS (1)
  - Hepatotoxicity [None]

NARRATIVE: CASE EVENT DATE: 20171218
